FAERS Safety Report 5657768-6 (Version None)
Quarter: 2008Q1

REPORT INFORMATION
  Report Type: 
  Country: None (occurrence: None)
  Receive Date: 20080310
  Receipt Date: 20080125
  Transmission Date: 20080703
  Serious: No
  Sender: FDA-Public Use
  Company Number: US-ASTRAZENECA-2006UW26445

PATIENT
  Age: 86 Year
  Sex: Female
  Weight: 70.8 kg

DRUGS (3)
  1. ZESTRIL [Suspect]
     Indication: HYPERTENSION
     Route: 048
     Dates: start: 20020101
  2. TOPROL-XL [Concomitant]
     Route: 048
  3. PLAVIX [Concomitant]
     Indication: ISCHAEMIC HEART DISEASE PROPHYLAXIS

REACTIONS (4)
  - BLOOD PRESSURE FLUCTUATION [None]
  - BLOOD PRESSURE INCREASED [None]
  - HYPOTENSION [None]
  - PERSONALITY CHANGE [None]
